FAERS Safety Report 7604472-0 (Version None)
Quarter: 2011Q3

REPORT INFORMATION
  Report Type: 
  Country: None (occurrence: None)
  Receive Date: 20110712
  Receipt Date: 20110705
  Transmission Date: 20111222
  Serious: Yes (Hospitalization)
  Sender: FDA-Public Use
  Company Number: GXKR2010JP12234

PATIENT
  Age: 86 Year
  Sex: Male
  Weight: 48 kg

DRUGS (8)
  1. ISOSORBIDE DINITRATE [Concomitant]
  2. ETAMIPHYLLIN HYDROCHLORIDE [Concomitant]
     Indication: PULMONARY TUBERCULOSIS
     Route: 065
  3. GOSERELIN ACETATE [Concomitant]
  4. ISONIAZID [Concomitant]
     Indication: PULMONARY TUBERCULOSIS
     Route: 065
  5. AMLODIPINE [Concomitant]
  6. RIFAMPICIN [Suspect]
     Indication: PULMONARY TUBERCULOSIS
     Route: 065
     Dates: start: 20091201
  7. RIFAMPICIN [Suspect]
     Dates: start: 20100301
  8. ZOPICLONE [Concomitant]

REACTIONS (8)
  - RASH [None]
  - DIARRHOEA [None]
  - MALAISE [None]
  - INTERSTITIAL LUNG DISEASE [None]
  - PULMONARY TUBERCULOSIS [None]
  - C-REACTIVE PROTEIN INCREASED [None]
  - PLEURAL EFFUSION [None]
  - PYREXIA [None]
